FAERS Safety Report 4380427-7 (Version None)
Quarter: 2004Q2

REPORT INFORMATION
  Report Type: 
  Country: None (occurrence: None)
  Receive Date: 20040614
  Receipt Date: 20040528
  Transmission Date: 20050107
  Serious: Yes (Death, Hospitalization, Other)
  Sender: FDA-Public Use
  Company Number: 2004216274MX

PATIENT
  Age: 74 Year
  Sex: Female

DRUGS (6)
  1. GENOTROPIN [Suspect]
     Dosage: INTRAMUSCULAR
     Route: 030
     Dates: start: 20040412
  2. HYDROCHLOROTHIAZIDE [Concomitant]
  3. VALSARTAN (VALSARTAN) [Concomitant]
  4. RANITIDINE [Concomitant]
  5. ASPIRIN [Concomitant]
  6. DIGOXIN [Concomitant]

REACTIONS (3)
  - ANXIETY [None]
  - HYPOTENSION [None]
  - MYOCARDIAL INFARCTION [None]
